FAERS Safety Report 8294153-5 (Version None)
Quarter: 2012Q2

REPORT INFORMATION
  Report Type: 
  Country: None (occurrence: None)
  Receive Date: 20120418
  Receipt Date: 20120410
  Transmission Date: 20120825
  Serious: Yes (Death, Hospitalization, Other)
  Sender: FDA-Public Use
  Company Number: PHHY2011JP19840

PATIENT
  Sex: Male
  Weight: 65 kg

DRUGS (61)
  1. EXJADE [Suspect]
     Dosage: UNK UKN, UNK
     Route: 048
     Dates: start: 20110310, end: 20110620
  2. NEORAL [Suspect]
     Dosage: 20 MG, DAILY
     Route: 048
     Dates: start: 20101015, end: 20101021
  3. AMBISOME [Suspect]
     Dosage: 140 MG, DAILY
     Route: 042
     Dates: start: 20110705, end: 20110720
  4. COTRIM [Concomitant]
     Indication: PROPHYLAXIS
     Dosage: 80 MG, UNK
     Route: 048
     Dates: start: 20100803
  5. COTRIM [Concomitant]
     Dosage: 80 MG, UNK
     Route: 048
     Dates: end: 20110720
  6. ZOLPIDEM [Concomitant]
     Indication: PROPHYLAXIS
     Dosage: 10 MG, UNK
     Route: 048
     Dates: end: 20110720
  7. ROHYPNOL [Concomitant]
     Indication: PROPHYLAXIS
     Dosage: 2 MG, UNK
     Route: 048
     Dates: end: 20110720
  8. ZITHROMAX [Concomitant]
     Dosage: 500 MG, UNK
     Route: 048
     Dates: start: 20100810, end: 20100812
  9. LASTET S [Concomitant]
     Indication: NEOPLASM PROGRESSION
     Dosage: 100 MG, UNK
     Route: 048
  10. RED CELLS CONCENTRATED [Concomitant]
     Dosage: 2 U, UNK
     Dates: start: 20110412
  11. RED CELLS CONCENTRATED [Concomitant]
     Dosage: 2 U, UNK
     Dates: start: 20110524
  12. PURSENNID [Concomitant]
     Indication: PROPHYLAXIS
     Dosage: 24 MG, UNK
     Route: 048
     Dates: start: 20110222
  13. EXJADE [Suspect]
     Dosage: 125 MG  DAILY
     Route: 048
     Dates: start: 20110301, end: 20110308
  14. DIFLUCAN [Concomitant]
     Indication: PROPHYLAXIS
     Dosage: 100 MG, UNK
     Route: 048
     Dates: start: 20100803
  15. ALLOPURINOL [Concomitant]
     Indication: PROPHYLAXIS
     Dosage: 300 MG, UNK
     Route: 048
     Dates: start: 20110607
  16. RED CELLS CONCENTRATED [Concomitant]
     Dosage: 2 U, UNK
     Dates: start: 20110318
  17. PURSENNID [Concomitant]
     Dosage: 12 MG, UNK
     Route: 048
  18. NEORAL [Suspect]
     Indication: MYELODYSPLASTIC SYNDROME
     Dosage: 200 MG, DAILY
     Route: 048
     Dates: start: 20100803, end: 20100927
  19. CIPROFLOXACIN [Concomitant]
     Indication: PROPHYLAXIS
     Dosage: 600 MG, UNK
     Route: 048
     Dates: start: 20100803
  20. HYDREA [Concomitant]
     Indication: NEOPLASM PROGRESSION
  21. ALLOPURINOL [Concomitant]
     Dosage: 100 MG, UNK
     Route: 048
     Dates: end: 20110720
  22. LASTET S [Concomitant]
     Indication: MYELODYSPLASTIC SYNDROME
     Dosage: 50 MG, UNK
     Route: 048
     Dates: start: 20110609
  23. SUCRALFATE [Concomitant]
     Indication: PROPHYLAXIS
     Dosage: 3 G, UNK
     Route: 048
     Dates: start: 20110204
  24. SUCRALFATE [Concomitant]
     Dosage: 3 G, UNK
     Route: 048
     Dates: end: 20110425
  25. RED CELLS CONCENTRATED [Concomitant]
     Dosage: 2 U, UNK
     Dates: start: 20110609
  26. EXJADE [Suspect]
     Indication: IRON OVERLOAD
     Dosage: 1500 MG,DAILY
     Route: 048
     Dates: start: 20100803, end: 20100809
  27. EXJADE [Suspect]
     Dosage: 500 MG, DAILY
     Route: 048
     Dates: start: 20100907, end: 20101015
  28. AMBISOME [Suspect]
     Dosage: 140 MG, DAILY
     Route: 042
     Dates: start: 20110610, end: 20110627
  29. LANSOPRAZOLE [Concomitant]
     Dosage: 15 MG, UNK
     Route: 048
     Dates: end: 20110720
  30. LOXONIN [Concomitant]
     Dosage: UNK UKN, UNK
     Route: 048
     Dates: start: 20100812
  31. HYDREA [Concomitant]
     Indication: MYELODYSPLASTIC SYNDROME
     Dosage: 1000 MG, UNK
     Route: 048
     Dates: start: 20110624, end: 20110629
  32. RED CELLS CONCENTRATED [Concomitant]
     Dosage: 2 U, UNK
     Dates: start: 20110627
  33. RED CELLS CONCENTRATED [Concomitant]
     Dosage: 2 U/ 0.5 WEEKS
     Dates: start: 20110701, end: 20110715
  34. AMBISOME [Suspect]
     Indication: PNEUMONIA
     Dosage: 150 MG, DAILY
     Route: 042
     Dates: start: 20110301, end: 20110318
  35. LANSOPRAZOLE [Concomitant]
     Dosage: 15 MG, UNK
     Route: 048
     Dates: start: 20110204, end: 20110331
  36. ZOLPIDEM [Concomitant]
     Indication: INSOMNIA
     Dosage: 10 MG, UNK
     Route: 048
     Dates: start: 20100803
  37. LOXONIN [Concomitant]
     Dosage: 180 MG, UNK
     Route: 048
     Dates: end: 20110720
  38. PRIMOBOLAN-DEPOT INJ [Concomitant]
     Dosage: 10 MG, UNK
     Route: 048
     Dates: end: 20110720
  39. LASIX [Concomitant]
     Indication: MYELODYSPLASTIC SYNDROME
     Dosage: 10 MG, UNK
     Dates: start: 20110608, end: 20110720
  40. MUCOSOLVAN [Concomitant]
     Indication: PROPHYLAXIS
     Dosage: 45 MG, UNK
     Route: 048
     Dates: start: 20110612, end: 20110720
  41. RED CELLS CONCENTRATED [Concomitant]
     Dosage: 2 U, EVERY WEEK
     Dates: start: 20110204, end: 20110222
  42. RED CELLS CONCENTRATED [Concomitant]
     Dosage: 2 U, EVERY 1.5 WEEKS
     Dates: start: 20110304, end: 20110315
  43. RED CELLS CONCENTRATED [Concomitant]
     Dosage: 2 U, UNK
     Dates: start: 20110426
  44. ASPIRIN [Concomitant]
     Dosage: 3 G, UNK
     Route: 048
     Dates: start: 20100803
  45. EXJADE [Suspect]
     Indication: MYELODYSPLASTIC SYNDROME
     Dosage: 625 MG, DAILY
     Route: 048
     Dates: start: 20100810, end: 20100830
  46. EXJADE [Suspect]
     Dosage: 500 MG, DAILY
     Route: 048
     Dates: start: 20100831, end: 20100906
  47. CIPROFLOXACIN [Concomitant]
     Dosage: 600 MG, UNK
     Route: 048
     Dates: end: 20110721
  48. ROHYPNOL [Concomitant]
     Indication: INSOMNIA
     Dosage: 2 MG, UNK
     Route: 048
     Dates: start: 20100803
  49. LASTET S [Concomitant]
     Dosage: 50 MG, UNK
     Route: 048
     Dates: end: 20110720
  50. RED CELLS CONCENTRATED [Concomitant]
     Dosage: 2 U, UNK
     Dates: start: 20110607
  51. PURSENNID [Concomitant]
     Dosage: 24 MG, UNK
     Route: 048
     Dates: end: 20110720
  52. NEORAL [Suspect]
     Dosage: 50 MG, DAILY
     Route: 048
     Dates: start: 20101009, end: 20101014
  53. MAGNESIUM OXIDE [Concomitant]
     Dosage: UNK UKN, UNK
     Route: 048
     Dates: start: 20100921, end: 20100927
  54. CEFEPIME HYDROCHLORIDE [Concomitant]
     Dosage: 1 G, UNK
     Dates: start: 20101005, end: 20101013
  55. RED CELLS CONCENTRATED [Concomitant]
     Dosage: 2 U, UNK
     Dates: start: 20110617
  56. RED CELLS CONCENTRATED [Concomitant]
     Dosage: 2 U, UNK
     Dates: start: 20110620
  57. LANSOPRAZOLE [Concomitant]
     Indication: PROPHYLAXIS
     Dosage: 15 MG, UNK
     Route: 048
     Dates: start: 20100803
  58. DIFLUCAN [Concomitant]
     Dosage: 100 MG, UNK
     Route: 048
     Dates: end: 20110621
  59. PRIMOBOLAN-DEPOT INJ [Concomitant]
     Indication: MYELODYSPLASTIC SYNDROME
     Dosage: 10 MG, UNK
     Route: 048
     Dates: start: 20100914
  60. MILMAG [Concomitant]
     Indication: PROPHYLAXIS
     Dosage: 1050 MG, UNK
     Route: 048
     Dates: start: 20110307, end: 20110425
  61. ASPIRIN [Concomitant]
     Dosage: 3 G, UNK
     Route: 048
     Dates: end: 20101004

REACTIONS (8)
  - PLATELET COUNT INCREASED [None]
  - PYREXIA [None]
  - NEOPLASM PROGRESSION [None]
  - PNEUMONIA [None]
  - UPPER RESPIRATORY TRACT INFLAMMATION [None]
  - WHITE BLOOD CELL COUNT INCREASED [None]
  - RENAL IMPAIRMENT [None]
  - NEOPLASM MALIGNANT [None]
